FAERS Safety Report 10611013 (Version 1)
Quarter: 2014Q4

REPORT INFORMATION
  Report Type: Spontaneous
  Country: US (occurrence: US)
  Receive Date: 20141126
  Receipt Date: 20141126
  Transmission Date: 20150529
  Serious: Yes (Hospitalization)
  Sender: FDA-Public Use
  Company Number: US-BRISTOL-MYERS SQUIBB COMPANY-21615976

PATIENT
  Age: 24 Year
  Sex: Female
  Weight: 60.32 kg

DRUGS (5)
  1. IRON [Suspect]
     Active Substance: IRON
  2. SULFADIAZINE. [Suspect]
     Active Substance: SULFADIAZINE
  3. COUMADIN [Suspect]
     Active Substance: WARFARIN SODIUM
  4. TREPROSTINIL [Suspect]
     Active Substance: TREPROSTINIL
     Indication: PULMONARY ARTERIAL HYPERTENSION
     Dosage: INJECTION 1MG/ML
     Route: 041
     Dates: start: 20120915, end: 20141111
  5. EPOPROSTENOL SODIUM. [Suspect]
     Active Substance: EPOPROSTENOL SODIUM

REACTIONS (13)
  - Anaemia [Unknown]
  - Device related infection [Unknown]
  - Headache [Unknown]
  - Urticaria [Unknown]
  - Nausea [Unknown]
  - Pain in extremity [Unknown]
  - Decreased appetite [Unknown]
  - Weight decreased [Unknown]
  - Dyspnoea exertional [Unknown]
  - Vomiting [Unknown]
  - Drug hypersensitivity [Unknown]
  - Diarrhoea [Unknown]
  - Vaginal haemorrhage [Unknown]

NARRATIVE: CASE EVENT DATE: 2014
